FAERS Safety Report 26041090 (Version 1)
Quarter: 2025Q4

REPORT INFORMATION
  Report Type: Spontaneous
  Country: US (occurrence: US)
  Receive Date: 20251113
  Receipt Date: 20251113
  Transmission Date: 20260118
  Serious: Yes (Other)
  Sender: MERCK SHARP & DOHME LLC
  Company Number: US-009507513-2347319

PATIENT
  Sex: Female

DRUGS (5)
  1. SOTATERCEPT [Suspect]
     Active Substance: SOTATERCEPT
     Indication: Pulmonary hypertension
     Dosage: UNK
  2. SOTATERCEPT [Suspect]
     Active Substance: SOTATERCEPT
  3. SOTATERCEPT [Suspect]
     Active Substance: SOTATERCEPT
  4. SOTATERCEPT [Suspect]
     Active Substance: SOTATERCEPT
  5. TREPROSTINIL [Concomitant]
     Active Substance: TREPROSTINIL
     Indication: Pulmonary hypertension
     Route: 055

REACTIONS (6)
  - Carotid artery aneurysm [Unknown]
  - Ventilation perfusion mismatch [Unknown]
  - Malaise [Unknown]
  - Pulmonary embolism [Unknown]
  - Hypoxia [Unknown]
  - Mixed connective tissue disease [Unknown]
